FAERS Safety Report 9701208 (Version 1)
Quarter: 2013Q4

REPORT INFORMATION
  Report Type: Spontaneous
  Country: US (occurrence: US)
  Receive Date: 20131121
  Receipt Date: 20131121
  Transmission Date: 20140711
  Serious: No
  Sender: FDA-Public Use
  Company Number: US-GILEAD-2008-0016048

PATIENT
  Age: 46 Year
  Sex: Female
  Weight: 49.89 kg

DRUGS (3)
  1. LETAIRIS [Suspect]
     Indication: PULMONARY ARTERIAL HYPERTENSION
     Route: 048
     Dates: start: 200707
  2. LETAIRIS [Suspect]
     Route: 048
     Dates: start: 200706
  3. CELLCEPT [Suspect]

REACTIONS (1)
  - Liver function test abnormal [None]
